FAERS Safety Report 23230385 (Version 4)
Quarter: 2025Q2

REPORT INFORMATION
  Report Type: Spontaneous
  Country: US (occurrence: US)
  Receive Date: 20231127
  Receipt Date: 20250403
  Transmission Date: 20250717
  Serious: No
  Sender: SANOFI AVENTIS
  Company Number: US-SA-SAC20231121001389

PATIENT
  Age: 38 Year
  Sex: Male

DRUGS (8)
  1. DUPIXENT [Suspect]
     Active Substance: DUPILUMAB
     Indication: Nasal polyps
     Dosage: 300 MG, QOW
     Route: 058
     Dates: start: 20230729, end: 2023
  2. DUPIXENT [Suspect]
     Active Substance: DUPILUMAB
     Dosage: 300 MG, QOW
     Route: 058
     Dates: start: 20231027
  3. NEILMED SINUS RINSE [Concomitant]
     Active Substance: SODIUM BICARBONATE\SODIUM CHLORIDE
     Dosage: UNK UNK, BID
  4. MUPIROCIN [Concomitant]
     Active Substance: MUPIROCIN
     Dosage: UNK UNK, BID
  5. SODIUM CHLORIDE [Concomitant]
     Active Substance: SODIUM CHLORIDE
     Dosage: UNK, BID
  6. TYLENOL [Concomitant]
     Active Substance: ACETAMINOPHEN
  7. BUDESONIDE [Concomitant]
     Active Substance: BUDESONIDE
     Dosage: UNK UNK, BID
  8. AZELASTINE [Concomitant]
     Active Substance: AZELASTINE
     Dosage: UNK UNK, BID

REACTIONS (9)
  - Ageusia [Recovering/Resolving]
  - Nasal obstruction [Recovering/Resolving]
  - Sleep disorder due to a general medical condition [Recovering/Resolving]
  - Nasal septum deviation [Unknown]
  - Injection site pain [Not Recovered/Not Resolved]
  - Injection site reaction [Unknown]
  - Polypectomy [Unknown]
  - Sinus operation [Unknown]
  - Turbinoplasty [Unknown]

NARRATIVE: CASE EVENT DATE: 20230101
